FAERS Safety Report 9839801 (Version 1)
Quarter: 2014Q1

REPORT INFORMATION
  Report Type: Spontaneous
  Country: US (occurrence: US)
  Receive Date: 20140124
  Receipt Date: 20140124
  Transmission Date: 20141002
  Serious: No
  Sender: FDA-Public Use
  Company Number: US-009507513-1401USA006753

PATIENT
  Sex: 0

DRUGS (1)
  1. EMEND [Suspect]
     Dosage: 150 MG, UNK
     Route: 042

REACTIONS (1)
  - Burning sensation [Unknown]
